FAERS Safety Report 18956793 (Version 1)
Quarter: 2021Q1

REPORT INFORMATION
  Report Type: Spontaneous
  Country: US (occurrence: US)
  Receive Date: 20210302
  Receipt Date: 20210302
  Transmission Date: 20210420
  Serious: No
  Sender: FDA-Public Use
  Company Number: US-BION-008545

PATIENT
  Sex: Male

DRUGS (1)
  1. BIONPHARMA^S NIMODIPINE CAPSULE 30 MG [Suspect]
     Active Substance: NIMODIPINE
     Indication: AORTIC ANEURYSM
     Dosage: STRENGTH: 30 MG, 4 TIMES A DAY FOR 2 WEEKS

REACTIONS (2)
  - Product use in unapproved indication [Not Recovered/Not Resolved]
  - Product prescribing error [Not Recovered/Not Resolved]
